FAERS Safety Report 22073922 (Version 1)
Quarter: 2023Q1

REPORT INFORMATION
  Report Type: Report from Study
  Country: CA (occurrence: CA)
  Receive Date: 20230308
  Receipt Date: 20230308
  Transmission Date: 20230417
  Serious: Yes (Other)
  Sender: FDA-Public Use
  Company Number: CA-ABBVIE-4307360

PATIENT
  Sex: Male

DRUGS (1)
  1. LUPRON DEPOT [Suspect]
     Active Substance: LEUPROLIDE ACETATE
     Indication: Prostate cancer
     Route: 030
     Dates: start: 20220318

REACTIONS (5)
  - Injection site abscess [Recovering/Resolving]
  - Incision site haematoma [Unknown]
  - Pain [Unknown]
  - Swelling [Recovering/Resolving]
  - Abscess drainage [Unknown]
